FAERS Safety Report 11219190 (Version 4)
Quarter: 2015Q4

REPORT INFORMATION
  Report Type: Report from Study
  Country: US (occurrence: US)
  Receive Date: 20150625
  Receipt Date: 20151006
  Transmission Date: 20160304
  Serious: Yes (Other)
  Sender: FDA-Public Use
  Company Number: US-GILEAD-2015-0160073

PATIENT
  Age: 76 Year
  Sex: Female

DRUGS (2)
  1. ADCIRCA [Concomitant]
     Active Substance: TADALAFIL
  2. AMBRISENTAN [Suspect]
     Active Substance: AMBRISENTAN
     Indication: PULMONARY ARTERIAL HYPERTENSION
     Dosage: 10 MG, QD
     Route: 065
     Dates: start: 20150409

REACTIONS (6)
  - Blood pressure decreased [Unknown]
  - Weight decreased [Unknown]
  - Oedema [Unknown]
  - Back pain [Unknown]
  - Decreased appetite [Unknown]
  - Pleural effusion [Not Recovered/Not Resolved]
